FAERS Safety Report 8168517-4 (Version None)
Quarter: 2012Q1

REPORT INFORMATION
  Report Type: 
  Country: None (occurrence: None)
  Receive Date: 20120227
  Receipt Date: 20120227
  Transmission Date: 20120608
  Serious: Yes (Hospitalization)
  Sender: FDA-Public Use
  Company Number: None

PATIENT
  Age: 70 Year
  Sex: Female
  Weight: 79.378 kg

DRUGS (1)
  1. FOSAPREPITANT DIMEGLUMINE [Suspect]
     Indication: PROPHYLAXIS OF NAUSEA AND VOMITING
     Dosage: 150MG
     Route: 041
     Dates: start: 20120201, end: 20120201

REACTIONS (9)
  - INFUSION RELATED REACTION [None]
  - DYSPNOEA [None]
  - NAUSEA [None]
  - DISORIENTATION [None]
  - ANAPHYLACTIC REACTION [None]
  - CONVULSION [None]
  - LUNG DISORDER [None]
  - CONFUSIONAL STATE [None]
  - HEART RATE INCREASED [None]
